FAERS Safety Report 17778467 (Version 12)
Quarter: 2020Q4

REPORT INFORMATION
  Report Type: Report from Study
  Country: ES (occurrence: ES)
  Receive Date: 20200513
  Receipt Date: 20201203
  Transmission Date: 20210113
  Serious: Yes (Hospitalization)
  Sender: FDA-Public Use
  Company Number: ES-EISAI MEDICAL RESEARCH-EC-2020-074559

PATIENT
  Age: 82 Year
  Sex: Male
  Weight: 68.75 kg

DRUGS (15)
  1. LENVATINIB [Suspect]
     Active Substance: LENVATINIB
     Dosage: OVERDOSE
     Route: 048
     Dates: start: 20200520, end: 20200520
  2. ORFIDAL [Concomitant]
     Active Substance: LORAZEPAM
     Dates: start: 202003
  3. TENOFOVIR [Concomitant]
     Active Substance: TENOFOVIR
     Dates: start: 20200313
  4. PLACEBO [Suspect]
     Active Substance: UNSPECIFIED INGREDIENT
     Route: 042
     Dates: start: 20200618
  5. PLACEBO [Suspect]
     Active Substance: UNSPECIFIED INGREDIENT
     Route: 042
     Dates: start: 20200520, end: 20200520
  6. BISOPROLOL [Concomitant]
     Active Substance: BISOPROLOL
     Dates: start: 20170206
  7. LENVATINIB [Suspect]
     Active Substance: LENVATINIB
     Indication: HEPATOCELLULAR CARCINOMA
     Route: 048
     Dates: start: 20200428, end: 20200505
  8. LENVATINIB [Suspect]
     Active Substance: LENVATINIB
     Route: 048
     Dates: start: 20200618
  9. URSOBILANE [Concomitant]
     Dates: start: 20200228
  10. LENVATINIB [Suspect]
     Active Substance: LENVATINIB
     Route: 048
     Dates: start: 20200513, end: 20200519
  11. LENVATINIB [Suspect]
     Active Substance: LENVATINIB
     Route: 048
     Dates: start: 20200521, end: 20200602
  12. PLACEBO [Suspect]
     Active Substance: UNSPECIFIED INGREDIENT
     Indication: HEPATOCELLULAR CARCINOMA
     Route: 042
     Dates: start: 20200428, end: 20200428
  13. POLARAMINE [Concomitant]
     Active Substance: DEXCHLORPHENIRAMINE MALEATE
     Dates: start: 20200228, end: 20200520
  14. AMOXICILLIN (+) CLAVULANTE POTASSIUM [Concomitant]
     Dates: start: 20200423, end: 20200427
  15. DUPROST [Concomitant]
     Dates: start: 20191114

REACTIONS (2)
  - Accidental overdose [Recovered/Resolved]
  - Hepatic encephalopathy [Recovered/Resolved]

NARRATIVE: CASE EVENT DATE: 20200505
